FAERS Safety Report 4603990-7 (Version None)
Quarter: 2005Q1

REPORT INFORMATION
  Report Type: 
  Country: None (occurrence: None)
  Receive Date: 20050310
  Receipt Date: 20050301
  Transmission Date: 20050727
  Serious: Yes (Other)
  Sender: FDA-Public Use
  Company Number: US-GLAXOSMITHKLINE-A0547697A

PATIENT
  Age: 84 Year
  Sex: Female
  Weight: 79 kg

DRUGS (6)
  1. ECOTRIN ADULT LOW STRENGTH TABLETS [Suspect]
     Indication: ANALGESIC INTERVENTION SUPPORTIVE THERAPY
     Dosage: 81MG PER DAY
     Route: 048
     Dates: start: 20020101
  2. PREDNISONE [Suspect]
     Dates: start: 20040101, end: 20040101
  3. ZETIA [Concomitant]
  4. DIOVAN [Concomitant]
  5. PLAVIX [Concomitant]
  6. ASACOL [Concomitant]

REACTIONS (1)
  - DIABETES MELLITUS [None]
